FAERS Safety Report 8091236-X (Version None)
Quarter: 2012Q1

REPORT INFORMATION
  Report Type: 
  Country: None (occurrence: None)
  Receive Date: 20120129
  Receipt Date: 20111025
  Transmission Date: 20120608
  Serious: No
  Sender: FDA-Public Use
  Company Number: US-ABBOTT-11P-163-0868170-00

PATIENT
  Age: 70 Year
  Sex: Female

DRUGS (9)
  1. HUMIRA [Suspect]
     Indication: CROHN'S DISEASE
     Dates: start: 20110301
  2. ALPHAGAN [Concomitant]
     Indication: INTRAOCULAR PRESSURE INCREASED
  3. FLORASTOR [Concomitant]
     Indication: PRODUCT USED FOR UNKNOWN INDICATION
     Dosage: 1 DAILY
  4. TRICOR [Concomitant]
     Indication: PRODUCT USED FOR UNKNOWN INDICATION
     Dosage: DAILY
  5. AZATHIOPRINE [Concomitant]
     Indication: RHEUMATOID ARTHRITIS
     Dosage: DAILY
  6. ASACOL [Concomitant]
     Indication: CROHN'S DISEASE
     Dosage: 4
  7. MELATONIN [Concomitant]
     Indication: INSOMNIA
  8. HYDRCHLOROTHIAZIDE [Concomitant]
     Indication: PRODUCT USED FOR UNKNOWN INDICATION
     Dosage: TAKES MONDAY, WEDNESDAY AND FRIDAY
  9. MICARDIS [Concomitant]
     Indication: BLOOD PRESSURE
     Dosage: DAILY

REACTIONS (1)
  - DIARRHOEA [None]
